FAERS Safety Report 10428102 (Version 2)
Quarter: 2015Q2

REPORT INFORMATION
  Report Type: Report from Study
  Country: US (occurrence: US)
  Receive Date: 20140903
  Receipt Date: 20150610
  Transmission Date: 20150821
  Serious: Yes (Hospitalization)
  Sender: FDA-Public Use
  Company Number: US-GILEAD-2014-0113856

PATIENT
  Age: 59 Year
  Sex: Female

DRUGS (15)
  1. PROTONIX [Concomitant]
     Active Substance: PANTOPRAZOLE SODIUM
  2. COREG [Concomitant]
     Active Substance: CARVEDILOL
  3. FUROSEMIDE. [Concomitant]
     Active Substance: FUROSEMIDE
  4. AMBRISENTAN [Suspect]
     Active Substance: AMBRISENTAN
     Indication: PULMONARY HYPERTENSION
     Dosage: 5 MG, QD
     Route: 065
     Dates: start: 20140819, end: 20140828
  5. LACTULOSE. [Concomitant]
     Active Substance: LACTULOSE
  6. XIFAXAN [Concomitant]
     Active Substance: RIFAXIMIN
  7. HUMALOG [Concomitant]
     Active Substance: INSULIN LISPRO
  8. AMBRISENTAN [Suspect]
     Active Substance: AMBRISENTAN
     Indication: LIVER DISORDER
  9. DOCUSATE [Concomitant]
     Active Substance: DOCUSATE
  10. ZOFRAN [Concomitant]
     Active Substance: ONDANSETRON HYDROCHLORIDE
  11. TRAMADOL [Concomitant]
     Active Substance: TRAMADOL
  12. LANTUS [Concomitant]
     Active Substance: INSULIN GLARGINE
  13. CLARITIN [Concomitant]
     Active Substance: LORATADINE
  14. IRON [Concomitant]
     Active Substance: IRON
  15. SPIRONOLACTONE. [Concomitant]
     Active Substance: SPIRONOLACTONE

REACTIONS (2)
  - Headache [Unknown]
  - Dyspnoea [Unknown]
